FAERS Safety Report 21664418 (Version 3)
Quarter: 2025Q4

REPORT INFORMATION
  Report Type: Spontaneous
  Country: EU (occurrence: EU)
  Receive Date: 20221130
  Receipt Date: 20251221
  Transmission Date: 20260118
  Serious: Yes (Hospitalization)
  Sender: VERTEX
  Company Number: None

PATIENT
  Age: 26 Year
  Sex: Female
  Weight: 59 kg

DRUGS (7)
  1. ELEXACAFTOR\IVACAFTOR\TEZACAFTOR [Suspect]
     Active Substance: ELEXACAFTOR\IVACAFTOR\TEZACAFTOR
     Indication: Cystic fibrosis carrier
     Dosage: 2 TABS IN AM
     Route: 061
  2. KALYDECO [Suspect]
     Active Substance: IVACAFTOR
     Indication: Cystic fibrosis carrier
     Dosage: 1 TAB IN PM
     Route: 061
  3. INSULIN NOS [Concomitant]
     Active Substance: INSULIN NOS
     Indication: Cystic fibrosis carrier
     Dosage: 3 TIMES IN AM, 3 TIMES IN AFTERNOON AND 4 TIMES IN PM
     Route: 061
  4. INSULIN NOS [Concomitant]
     Active Substance: INSULIN NOS
     Indication: Gestational diabetes
  5. CREON [Concomitant]
     Active Substance: PANCRELIPASE AMYLASE\PANCRELIPASE LIPASE\PANCRELIPASE PROTEASE
     Indication: Cystic fibrosis carrier
     Dosage: 5 TIMES IN AM, AFTERNOON AND PM
     Route: 061
  6. TOCOLION [Concomitant]
     Indication: Cystic fibrosis carrier
     Dosage: 4 TIMES IN AM
     Route: 061
  7. ATARAX [Concomitant]
     Active Substance: HYDROXYZINE HYDROCHLORIDE

REACTIONS (2)
  - Haemorrhage foetal [Recovered/Resolved with Sequelae]
  - Premature rupture of membranes [Recovered/Resolved with Sequelae]

NARRATIVE: CASE EVENT DATE: 20220322
